FAERS Safety Report 6022018-8 (Version None)
Quarter: 2008Q4

REPORT INFORMATION
  Report Type: 
  Country: None (occurrence: None)
  Receive Date: 20081229
  Receipt Date: 20081217
  Transmission Date: 20090506
  Serious: Yes (Other)
  Sender: FDA-Public Use
  Company Number: AR-PFIZER INC-2008158410

PATIENT

DRUGS (1)
  1. SOLU-MEDROL [Suspect]
     Indication: IMMUNOSUPPRESSION
     Dosage: 500 MG, UNK
     Dates: start: 20081024, end: 20081110

REACTIONS (1)
  - HYPERGLYCAEMIA [None]
